FAERS Safety Report 6204641-0 (Version None)
Quarter: 2009Q2

REPORT INFORMATION
  Report Type: 
  Country: None (occurrence: None)
  Receive Date: 20090527
  Receipt Date: 20090518
  Transmission Date: 20091009
  Serious: Yes (Hospitalization)
  Sender: FDA-Public Use
  Company Number: FR-SANOFI-SYNTHELABO-A02200901294

PATIENT
  Age: 27 Year
  Sex: Female

DRUGS (1)
  1. MYTELASE [Suspect]
     Indication: MUSCULAR WEAKNESS
     Dosage: UNK
     Route: 048

REACTIONS (4)
  - CAESAREAN SECTION [None]
  - DRUG EXPOSURE DURING PREGNANCY [None]
  - OVERDOSE [None]
  - RESPIRATORY DEPRESSION [None]
